FAERS Safety Report 7391102-9 (Version None)
Quarter: 2011Q1

REPORT INFORMATION
  Report Type: 
  Country: None (occurrence: None)
  Receive Date: 20110324
  Receipt Date: 20110308
  Transmission Date: 20110831
  Serious: Yes (Other)
  Sender: FDA-Public Use
  Company Number: FK201100431

PATIENT
  Age: 50 Year
  Sex: Male

DRUGS (7)
  1. VINCRISTINE [Suspect]
     Indication: T-CELL TYPE ACUTE LEUKAEMIA
  2. FLUCONAZOL (FLUCONAZOL) (FLUCONAZOL) [Concomitant]
  3. CYCLOPHOSPHAMIDE [Suspect]
     Indication: T-CELL TYPE ACUTE LEUKAEMIA
  4. DEXAMETHASONE [Suspect]
     Indication: T-CELL TYPE ACUTE LEUKAEMIA
  5. CYTARABINE [Suspect]
     Indication: T-CELL TYPE ACUTE LEUKAEMIA
  6. DOXORUBICIN (MANUFACTURER UNKNOWN) (DOXORUBICIN HYDROCHLORIDE) (DOXORU [Suspect]
     Indication: T-CELL TYPE ACUTE LEUKAEMIA
  7. CIPROFLOXACIN [Concomitant]

REACTIONS (4)
  - TOXICITY TO VARIOUS AGENTS [None]
  - RETINAL HAEMORRHAGE [None]
  - NECROTISING RETINITIS [None]
  - CYTOMEGALOVIRUS CHORIORETINITIS [None]
